FAERS Safety Report 14395446 (Version 1)
Quarter: 2018Q1

REPORT INFORMATION
  Report Type: Spontaneous
  Country: US (occurrence: US)
  Receive Date: 20180116
  Receipt Date: 20180116
  Transmission Date: 20180509
  Serious: No
  Sender: FDA-Public Use
  Company Number: US-ALLERGAN-1706097US

PATIENT
  Age: 65 Year
  Sex: Female
  Weight: 131.7 kg

DRUGS (3)
  1. BOTOX [Suspect]
     Active Substance: ONABOTULINUMTOXINA
     Indication: HYPERTONIC BLADDER
     Dosage: UNK, SINGLE
     Route: 043
     Dates: start: 20161030, end: 20161030
  2. RAMPRIL [Concomitant]
     Active Substance: RAMIPRIL
     Indication: HYPERTENSION
     Dosage: 100 MG, QD
     Route: 048
     Dates: start: 2013
  3. ESTRADIOL. [Concomitant]
     Active Substance: ESTRADIOL
     Indication: HORMONE REPLACEMENT THERAPY
     Dosage: UNK, QD
     Route: 048
     Dates: start: 2007

REACTIONS (9)
  - Weight decreased [Recovered/Resolved]
  - Dysphonia [Recovered/Resolved]
  - Muscular weakness [Recovered/Resolved]
  - Cystitis [Recovered/Resolved]
  - Decreased appetite [Recovered/Resolved]
  - Dysstasia [Recovered/Resolved]
  - Drug ineffective [Unknown]
  - Mental impairment [Recovered/Resolved]
  - Pain in extremity [Recovered/Resolved]

NARRATIVE: CASE EVENT DATE: 2016
